FAERS Safety Report 4374884-X (Version None)
Quarter: 2004Q2

REPORT INFORMATION
  Report Type: 
  Country: None (occurrence: None)
  Receive Date: 20040603
  Receipt Date: 20040102
  Transmission Date: 20050107
  Serious: Yes (Other)
  Sender: FDA-Public Use
  Company Number: 200410013US

PATIENT
  Age: 28 Year
  Sex: Female
  Weight: 115.4 kg

DRUGS (6)
  1. LOVENOX [Suspect]
     Indication: DEEP VENOUS THROMBOSIS PROPHYLAXIS
     Dosage: 170 MG QD
     Dates: start: 20030814, end: 20040101
  2. LOVENOX [Suspect]
     Indication: DEEP VENOUS THROMBOSIS PROPHYLAXIS
     Dosage: 120 MG BID
     Dates: start: 20040102
  3. PARACETAMOL, HYDROCODONE BITARTRATE (LORTAB) [Concomitant]
  4. PROMETHAZINE HCL [Concomitant]
  5. ALBUTEROL [Concomitant]
  6. FLUTICASONE PROPIONATE, SALMETEROL XINAFOATE (ADVAIR DISKUS) [Concomitant]

REACTIONS (1)
  - ABORTION SPONTANEOUS [None]
